FAERS Safety Report 14626865 (Version 2)
Quarter: 2018Q4

REPORT INFORMATION
  Report Type: Spontaneous
  Country: US (occurrence: US)
  Receive Date: 20180312
  Receipt Date: 20181221
  Transmission Date: 20190204
  Serious: Yes (Hospitalization)
  Sender: FDA-Public Use
  Company Number: US-JNJFOC-20180307792

PATIENT
  Age: 72 Year
  Sex: Male

DRUGS (8)
  1. PRILOSEC [Concomitant]
     Active Substance: OMEPRAZOLE MAGNESIUM
     Dosage: 20 MG, TAKE ONE CAPSULE 30-45 MINUTES PRIOR TO MAIN MEAL OF DAY
  2. PERI-COLACE [Concomitant]
     Active Substance: CASANTHRANOL\DOCUSATE SODIUM
     Indication: CONSTIPATION
     Dosage: 8.6-50 MG, TAKE TWO TABLETS BY MOUTH EVERY NIGHT AT BEDTIME AS NEEDED
  3. LASIX [Concomitant]
     Active Substance: FUROSEMIDE
     Route: 048
  4. IMBRUVICA [Suspect]
     Active Substance: IBRUTINIB
     Indication: MANTLE CELL LYMPHOMA
     Route: 048
  5. XANAX [Concomitant]
     Active Substance: ALPRAZOLAM
     Dosage: 0.5 MG, FIVE TIMES A DAY; TAKES 1 TAB AM, 1 TAB EARLY AFTERNOON, 2 BEDTIME, 1 MIDDLE IN THE NIGHT
     Route: 048
  6. MELATONIN [Concomitant]
     Active Substance: MELATONIN
     Indication: INSOMNIA
     Dosage: 3 MG, TAKE 10 MG BY MOUTH EVERY NIGHT AT BEDTIME AS NEEDED
     Route: 048
  7. NEURONTIN [Concomitant]
     Active Substance: GABAPENTIN
     Dosage: 300 MG, FIVE TIMES A DAY; TAKES 1 TAB AM, 1 TAB EARLY AFTERNOON, 2 BEDTIME, 1 MIDDLE IN THE NIGHT
     Route: 048
  8. ASPIRIN. [Concomitant]
     Active Substance: ASPIRIN
     Route: 048

REACTIONS (8)
  - Erosive duodenitis [Unknown]
  - Large intestine polyp [Unknown]
  - Gastritis erosive [Unknown]
  - Anxiety [Unknown]
  - Oedema peripheral [Unknown]
  - Confusional state [Unknown]
  - Anaemia [Unknown]
  - Contusion [Unknown]

NARRATIVE: CASE EVENT DATE: 201707
